FAERS Safety Report 17596785 (Version 1)
Quarter: 2020Q1

REPORT INFORMATION
  Report Type: Report from Study
  Country: NL (occurrence: NL)
  Receive Date: 20200330
  Receipt Date: 20200330
  Transmission Date: 20200409
  Serious: Yes (Hospitalization)
  Sender: FDA-Public Use
  Company Number: NL-AMGEN-NLDSL2020049420

PATIENT
  Age: 73 Year
  Sex: Male

DRUGS (11)
  1. XGEVA [Suspect]
     Active Substance: DENOSUMAB
     Indication: PROPHYLAXIS
     Dosage: 120 MILLIGRAM/1.7ML , Q4WK
     Route: 065
     Dates: start: 20191105
  2. PANTOPRAZOL [PANTOPRAZOLE] [Concomitant]
     Active Substance: PANTOPRAZOLE
     Dosage: 20 MILLIGRAM, QD, TABLET
  3. FUROSEMIDE. [Concomitant]
     Active Substance: FUROSEMIDE
     Dosage: 40 MILLIGRAM, QD, TABLET
  4. TRIAMCINOLONE ACETONIDE. [Concomitant]
     Active Substance: TRIAMCINOLONE ACETONIDE
     Dosage: UNK , TID, 7,2/1MG/G, EARDROPS
  5. METOPROLOL [METOPROLOL SUCCINATE] [Concomitant]
     Dosage: 100 MILLIGRAM, QD, TABLET
  6. GOSERELINE [Concomitant]
     Active Substance: GOSERELIN
     Dosage: 10.8 MILLIGRAM, 1WD1IJ
  7. CLARITROMYCINE [Concomitant]
     Active Substance: CLARITHROMYCIN
     Dosage: 500 MILLIGRAM, BID, TABLET
  8. ENZALUTAMIDE [Concomitant]
     Active Substance: ENZALUTAMIDE
     Dosage: 40 MILLIGRAM, QD, TABLET
  9. PERINDOPRIL [PERINDOPRIL ERBUMINE] [Concomitant]
     Dosage: 2 MILLIGRAM, QD, TABLET
  10. ACENOCOUMAROL [Concomitant]
     Active Substance: ACENOCOUMAROL
     Dosage: 1 MILLIGRAM, ACCORDING SCHEDULE TROMBOSE
  11. CALCIUM CARBONATE;COLECALCIFEROL [Concomitant]
     Active Substance: CALCIUM CARBONATE\CHOLECALCIFEROL
     Dosage: 1.25G/440IE (500MG CA), QD

REACTIONS (2)
  - Herpes zoster [Unknown]
  - Ear infection [Unknown]

NARRATIVE: CASE EVENT DATE: 20200316
